FAERS Safety Report 15272554 (Version 1)
Quarter: 2018Q3

REPORT INFORMATION
  Report Type: Spontaneous
  Country: US (occurrence: US)
  Receive Date: 20180813
  Receipt Date: 20180813
  Transmission Date: 20181010
  Serious: Yes (Hospitalization)
  Sender: FDA-Public Use
  Company Number: US-VERTEX PHARMACEUTICALS-2018-005596

PATIENT
  Age: 35 Year
  Sex: Male

DRUGS (5)
  1. CHOICEFUL VITAMINS [Concomitant]
  2. COLISTIMETHATE                     /00013204/ [Concomitant]
     Active Substance: COLISTIMETHATE SODIUM
  3. PULMOZYME [Concomitant]
     Active Substance: DORNASE ALFA
  4. SYMDEKO [Suspect]
     Active Substance: IVACAFTOR\TEZACAFTOR
     Indication: CYSTIC FIBROSIS
     Dosage: 100MG TEZACAFTOR/150MG IVACAFTOR AM
     Route: 048
  5. CAYSTON [Concomitant]
     Active Substance: AZTREONAM

REACTIONS (1)
  - Malaise [Unknown]

NARRATIVE: CASE EVENT DATE: 201807
